FAERS Safety Report 17107563 (Version 1)
Quarter: 2019Q4

REPORT INFORMATION
  Report Type: Spontaneous
  Country: FR (occurrence: FR)
  Receive Date: 20191203
  Receipt Date: 20191203
  Transmission Date: 20200122
  Serious: Yes (Other)
  Sender: FDA-Public Use
  Company Number: FR-MYLANLABS-2019M1116572

PATIENT
  Age: 38 Year
  Sex: Male
  Weight: 67 kg

DRUGS (7)
  1. AMITRIPTYLINE                      /00002202/ [Concomitant]
     Active Substance: AMITRIPTYLINE
     Dosage: UNK
  2. KETOPROFENE                        /00321701/ [Suspect]
     Active Substance: KETOPROFEN
     Indication: PAIN
     Dosage: NON RENSEIGN?E
     Route: 042
     Dates: start: 20190525, end: 20190529
  3. LANSOPRAZOLE. [Concomitant]
     Active Substance: LANSOPRAZOLE
  4. PREGABALIN. [Suspect]
     Active Substance: PREGABALIN
     Indication: PAIN
     Dosage: UNK (NON RENSEIGN?E)
     Route: 048
     Dates: start: 20190523, end: 20190524
  5. ANTALNOX [Suspect]
     Active Substance: NAPROXEN SODIUM
     Indication: PAIN
     Dosage: UNK (NON RENSEIGNEE)
     Route: 048
     Dates: start: 20190523, end: 20190524
  6. PARACETAMOL [Concomitant]
     Active Substance: ACETAMINOPHEN
  7. MORPHINE [Concomitant]
     Active Substance: MORPHINE

REACTIONS (2)
  - Folliculitis [Not Recovered/Not Resolved]
  - Abscess [Recovering/Resolving]

NARRATIVE: CASE EVENT DATE: 20190526
